FAERS Safety Report 15670547 (Version 1)
Quarter: 2018Q4

REPORT INFORMATION
  Report Type: Not Available
  Country: HN (occurrence: HN)
  Receive Date: 20181129
  Receipt Date: 20181129
  Transmission Date: 20190205
  Serious: Yes (Death)
  Sender: FDA-Public Use
  Company Number: HN-ANIPHARMA-2018-HN-000007

PATIENT
  Sex: Female

DRUGS (1)
  1. ATACAND [Suspect]
     Active Substance: CANDESARTAN CILEXETIL
     Indication: PRODUCT USED FOR UNKNOWN INDICATION
     Dosage: 32MG ONE TABLET IN THE MORNING AND ONE TABLET AT NIGHT
     Route: 048

REACTIONS (2)
  - Death [Fatal]
  - Off label use [Unknown]
